FAERS Safety Report 9708810 (Version 1)
Quarter: 2013Q4

REPORT INFORMATION
  Report Type: Spontaneous
  Country: US (occurrence: US)
  Receive Date: 20131125
  Receipt Date: 20131125
  Transmission Date: 20140711
  Serious: Yes (Life-Threatening, Hospitalization, Other)
  Sender: FDA-Public Use
  Company Number: CHPA2013US017518

PATIENT
  Age: 64 Year
  Sex: Female

DRUGS (2)
  1. 4 WAY FAST ACTING NASAL SPRAY [Suspect]
     Dosage: 1 DF, IN EACH NOSTRIL
     Route: 045
     Dates: start: 20131120, end: 20131120
  2. 4 WAY UNKNOWN [Suspect]

REACTIONS (8)
  - Atrial fibrillation [Recovering/Resolving]
  - Nephrolithiasis [Recovered/Resolved]
  - Sepsis [Recovered/Resolved]
  - Cholelithiasis [Recovered/Resolved]
  - Nasal congestion [Recovered/Resolved]
  - Incorrect dose administered [Unknown]
  - Incorrect drug administration duration [Unknown]
  - Expired drug administered [Unknown]
